FAERS Safety Report 20264301 (Version 1)
Quarter: 2021Q4

REPORT INFORMATION
  Report Type: Spontaneous
  Country: US (occurrence: None)
  Receive Date: 20211230
  Receipt Date: 20211230
  Transmission Date: 20220303
  Serious: Yes (Hospitalization)
  Sender: FDA-Public Use
  Company Number: None

PATIENT
  Age: 63 Year
  Sex: Male
  Weight: 84.46 kg

DRUGS (1)
  1. CASODEX [Suspect]
     Active Substance: BICALUTAMIDE
     Dates: end: 20190405

REACTIONS (5)
  - Rectal haemorrhage [None]
  - Rectal ulcer [None]
  - Rectoprostatic fistula [None]
  - Anal abscess [None]
  - Rectourethral fistula [None]

NARRATIVE: CASE EVENT DATE: 20200728
